FAERS Safety Report 22305824 (Version 1)
Quarter: 2023Q2

REPORT INFORMATION
  Report Type: Report from Study
  Country: CA (occurrence: None)
  Receive Date: 20230511
  Receipt Date: 20230511
  Transmission Date: 20230722
  Serious: Yes (Death, Other)
  Sender: FDA-Public Use
  Company Number: 2023A106969

PATIENT
  Sex: Female

DRUGS (1)
  1. TAGRISSO [Suspect]
     Active Substance: OSIMERTINIB
     Indication: Non-small cell lung cancer metastatic
     Route: 048
     Dates: start: 20180305

REACTIONS (1)
  - Death [Fatal]
